FAERS Safety Report 8963970 (Version 1)
Quarter: 2012Q4

REPORT INFORMATION
  Report Type: 
  Country: US (occurrence: US)
  Receive Date: 20121214
  Receipt Date: 20121214
  Transmission Date: 20130627
  Serious: Yes (Hospitalization, Other)
  Sender: FDA-Public Use
  Company Number: US-BAYER-2012-129955

PATIENT
  Age: 29 Year
  Sex: Female
  Weight: 76.19 kg

DRUGS (16)
  1. SAFYRAL [Suspect]
     Dosage: UNK
     Dates: start: 20110610, end: 20110801
  2. FLEXERIL [Concomitant]
     Dosage: 10 mg, 1/2 to 1, TID
  3. TYLENOL WITH CODEINE [Concomitant]
     Dosage: One [every] 6 [hours] prn
  4. TORADOL [Concomitant]
     Dosage: 60 mg, UNK
     Route: 030
  5. Z-PAK [Concomitant]
     Indication: OTITIS MEDIA
  6. TESSALON PERLES [Concomitant]
     Dosage: 200 mg, TID, prn
  7. LASIX [Concomitant]
  8. IBUPROFEN [Concomitant]
     Indication: PAIN
     Dosage: 800 mg, Q4HR, prn
  9. IMITREX [Concomitant]
     Indication: MIGRAINE HEADACHE
  10. ZITHROMAX [Concomitant]
     Indication: OTITIS MEDIA
  11. DILAUDID [Concomitant]
     Dosage: 1 mg, UNK
     Route: 042
  12. ZOFRAN [Concomitant]
     Dosage: 4 mg, UNK
     Route: 042
  13. PHENERGAN [Concomitant]
     Dosage: 12.5 mg, UNK
     Route: 042
  14. CYCLOBENZAPRINE [Concomitant]
     Indication: MUSCLE RELAXANT
     Dosage: UNK UNK, Q4HR
  15. PERCOCET [Concomitant]
     Indication: PAIN
  16. MICROGESTIN FE [Concomitant]
     Dosage: 1.5/30
     Route: 048

REACTIONS (5)
  - Cerebellar embolism [None]
  - Cerebral infarction [None]
  - Vertebral artery dissection [Recovering/Resolving]
  - Thrombosis [None]
  - Cerebrovascular accident [None]
